FAERS Safety Report 8501699-0 (Version None)
Quarter: 2012Q3

REPORT INFORMATION
  Report Type: 
  Country: None (occurrence: None)
  Receive Date: 20120711
  Receipt Date: 20120702
  Transmission Date: 20120928
  Serious: No
  Sender: FDA-Public Use
  Company Number: US-BIOGENIDEC-2012BI017063

PATIENT
  Sex: Female

DRUGS (1)
  1. TYSABRI [Suspect]
     Indication: MULTIPLE SCLEROSIS
     Route: 042
     Dates: start: 20100201

REACTIONS (7)
  - HALLUCINATION [None]
  - CARDIAC DISORDER [None]
  - RED BLOOD CELL COUNT DECREASED [None]
  - VISUAL ACUITY REDUCED [None]
  - ESCHERICHIA INFECTION [None]
  - BREAST MASS [None]
  - INFLUENZA [None]
